FAERS Safety Report 7520074-9 (Version None)
Quarter: 2011Q2

REPORT INFORMATION
  Report Type: 
  Country: None (occurrence: None)
  Receive Date: 20110602
  Receipt Date: 20110525
  Transmission Date: 20111010
  Serious: Yes (Hospitalization, Other)
  Sender: FDA-Public Use
  Company Number: US-ROCHE-773691

PATIENT
  Sex: Female

DRUGS (4)
  1. DIAZEPAM [Suspect]
     Route: 065
  2. PEGINTERFERON ALFA-2A [Suspect]
     Indication: HEPATITIS C
     Route: 065
     Dates: start: 20110117, end: 20110509
  3. RIBAVARIN [Suspect]
     Indication: HEPATITIS C
     Route: 065
     Dates: start: 20110117, end: 20110509
  4. METHADONE HCL [Suspect]
     Route: 065

REACTIONS (8)
  - OVERDOSE [None]
  - ANAEMIA [None]
  - RED BLOOD CELL COUNT DECREASED [None]
  - CONFUSIONAL STATE [None]
  - WHITE BLOOD CELL COUNT DECREASED [None]
  - DYSPNOEA [None]
  - HAEMATOCRIT DECREASED [None]
  - PLATELET COUNT DECREASED [None]
